FAERS Safety Report 24071015 (Version 1)
Quarter: 2024Q3

REPORT INFORMATION
  Report Type: Spontaneous
  Country: US (occurrence: None)
  Receive Date: 20240709
  Receipt Date: 20240709
  Transmission Date: 20241017
  Serious: Yes (Hospitalization)
  Sender: Public
  Company Number: None

PATIENT
  Age: 66 Year
  Sex: Male
  Weight: 65.3 kg

DRUGS (1)
  1. NIVOLUMAB [Suspect]
     Active Substance: NIVOLUMAB
     Indication: Renal cancer
     Dosage: OTHER FREQUENCY : Q4W;?
     Route: 042
     Dates: start: 20231207

REACTIONS (4)
  - Foot amputation [None]
  - Diabetic foot infection [None]
  - Osteomyelitis [None]
  - Toe amputation [None]

NARRATIVE: CASE EVENT DATE: 20240701
